FAERS Safety Report 9187945 (Version 2)
Quarter: 2013Q2

REPORT INFORMATION
  Report Type: Spontaneous
  Country: JP (occurrence: JP)
  Receive Date: 20130325
  Receipt Date: 20130529
  Transmission Date: 20140414
  Serious: Yes (Life-Threatening, Other)
  Sender: FDA-Public Use
  Company Number: JP-ROCHE-1164136

PATIENT
  Age: 65 Year
  Sex: Female

DRUGS (18)
  1. RITUXIMAB [Suspect]
     Indication: B-CELL LYMPHOMA
     Route: 042
  2. RITUXIMAB [Suspect]
     Route: 042
     Dates: start: 20121120, end: 20121120
  3. ENDOXAN [Suspect]
     Indication: B-CELL LYMPHOMA
     Route: 042
     Dates: start: 20121113, end: 20121113
  4. DOXORUBICIN HYDROCHLORIDE [Suspect]
     Indication: B-CELL LYMPHOMA
     Route: 042
     Dates: start: 20121113, end: 20121113
  5. ONCOVIN [Suspect]
     Indication: B-CELL LYMPHOMA
     Route: 042
     Dates: start: 20121113, end: 20121113
  6. GRAN [Suspect]
     Indication: NEUTROPHIL COUNT DECREASED
     Route: 058
     Dates: start: 20121122, end: 20121125
  7. PREDNISOLONE [Concomitant]
     Indication: B-CELL LYMPHOMA
     Route: 065
     Dates: start: 20121113, end: 20121117
  8. BAKTAR [Concomitant]
     Indication: INFECTION
     Route: 048
     Dates: start: 20121114, end: 20121220
  9. REBAMIPIDE [Concomitant]
     Indication: GASTRITIS
     Route: 048
     Dates: start: 20121113, end: 20130213
  10. MAGMITT [Concomitant]
     Indication: CONSTIPATION
     Route: 048
     Dates: start: 20121116, end: 20121128
  11. MAGMITT [Concomitant]
     Route: 048
     Dates: start: 20121129
  12. SALOBEL [Concomitant]
     Indication: HYPERURICAEMIA
     Route: 048
     Dates: start: 20121113, end: 20121127
  13. BROTIZOLAM [Concomitant]
     Indication: INSOMNIA
     Route: 048
     Dates: start: 20121120
  14. CALONAL [Concomitant]
     Indication: PYREXIA
     Route: 048
     Dates: start: 20121113, end: 20121203
  15. CALONAL [Concomitant]
     Indication: HEADACHE
  16. NEOMALLERMIN-TR [Concomitant]
     Indication: HYPERSENSITIVITY
     Route: 065
     Dates: start: 20121113, end: 20121113
  17. SOLU-CORTEF [Concomitant]
     Indication: URTICARIA
     Route: 042
     Dates: start: 20121113, end: 20121113
  18. LOXOPROFEN [Concomitant]
     Indication: HEADACHE
     Route: 048
     Dates: start: 20121204, end: 20130106

REACTIONS (4)
  - Ventricular extrasystoles [Recovering/Resolving]
  - Infusion related reaction [Unknown]
  - Cerebral vasoconstriction [Recovering/Resolving]
  - Urticaria [Unknown]
